FAERS Safety Report 8612424-7 (Version None)
Quarter: 2012Q3

REPORT INFORMATION
  Report Type: 
  Country: None (occurrence: None)
  Receive Date: 20120822
  Receipt Date: 20120821
  Transmission Date: 20120928
  Serious: Yes (Hospitalization)
  Sender: FDA-Public Use
  Company Number: NL-ABBOTT-12P-114-0892998-00

PATIENT
  Sex: Male
  Weight: 90 kg

DRUGS (4)
  1. BICALUTAMIDE [Concomitant]
     Indication: PROSTATE CANCER
     Route: 048
     Dates: start: 20090901, end: 20091201
  2. CALCIUM CARBONATE W/COLECALCIFEROL [Concomitant]
     Indication: OSTEOPOROSIS PROPHYLAXIS
     Route: 048
     Dates: start: 20090901, end: 20091201
  3. TAMSULOSIN HCL [Concomitant]
     Indication: PROSTATE CANCER
     Dates: start: 20100701, end: 20100901
  4. LEUPROLIDE ACETATE [Suspect]
     Indication: PROSTATE CANCER
     Route: 058
     Dates: start: 20091001

REACTIONS (1)
  - CATARACT [None]
